FAERS Safety Report 5835327-X (Version None)
Quarter: 2008Q3

REPORT INFORMATION
  Report Type: 
  Country: None (occurrence: None)
  Receive Date: 20080804
  Receipt Date: 20080718
  Transmission Date: 20090109
  Serious: Yes (Other)
  Sender: FDA-Public Use
  Company Number: ALA_00150_2008

PATIENT
  Sex: Female

DRUGS (2)
  1. REGLAN [Suspect]
     Indication: VOMITING
     Dosage: DF
  2. ZOFRAN [Concomitant]

REACTIONS (2)
  - FOETAL ARRHYTHMIA [None]
  - MATERNAL DRUGS AFFECTING FOETUS [None]
